APPROVED DRUG PRODUCT: GASTROVIST
Active Ingredient: DIATRIZOATE MEGLUMINE; DIATRIZOATE SODIUM
Strength: 66%;10%
Dosage Form/Route: SOLUTION;ORAL, RECTAL
Application: A087728 | Product #001
Applicant: BAYER HEALTHCARE PHARMACEUTICALS INC
Approved: Sep 23, 1982 | RLD: No | RS: No | Type: DISCN